FAERS Safety Report 6372317-5 (Version None)
Quarter: 2009Q3

REPORT INFORMATION
  Report Type: 
  Country: None (occurrence: None)
  Receive Date: 20090924
  Receipt Date: 20081013
  Transmission Date: 20100115
  Serious: No
  Sender: FDA-Public Use
  Company Number: US-ASTRAZENECA-2008UW22538

PATIENT
  Sex: Male

DRUGS (3)
  1. SEROQUEL [Suspect]
     Indication: SLEEP DISORDER
     Dosage: 50 MG
     Route: 048
  2. SEROQUEL [Suspect]
     Dosage: 100 MG
     Route: 048
  3. SEROQUEL [Suspect]
     Dosage: 250 MG
     Route: 048

REACTIONS (3)
  - FATIGUE [None]
  - PARALYSIS [None]
  - SPEECH DISORDER [None]
